FAERS Safety Report 6544331-8 (Version None)
Quarter: 2010Q1

REPORT INFORMATION
  Report Type: 
  Country: None (occurrence: None)
  Receive Date: 20100120
  Receipt Date: 20100120
  Transmission Date: 20100710
  Serious: No
  Sender: FDA-Public Use
  Company Number: None

PATIENT

DRUGS (1)
  1. TYLENOL-500 [Suspect]

REACTIONS (14)
  - ABDOMINAL DISCOMFORT [None]
  - ABNORMAL FAECES [None]
  - CRYING [None]
  - ELECTROCARDIOGRAM T WAVE ABNORMAL [None]
  - HYPERTENSION [None]
  - INSOMNIA [None]
  - MALAISE [None]
  - PAIN [None]
  - PAROSMIA [None]
  - PRODUCT ODOUR ABNORMAL [None]
  - PRODUCT QUALITY ISSUE [None]
  - SKIN ODOUR ABNORMAL [None]
  - STRESS [None]
  - URINE ODOUR ABNORMAL [None]
